FAERS Safety Report 10726521 (Version 1)
Quarter: 2015Q1

REPORT INFORMATION
  Report Type: Spontaneous
  Country: IT (occurrence: IT)
  Receive Date: 20150121
  Receipt Date: 20150121
  Transmission Date: 20150721
  Serious: Yes (Hospitalization)
  Sender: FDA-Public Use
  Company Number: IT-SA-2015SA005562

PATIENT
  Age: 95 Year
  Sex: Female

DRUGS (5)
  1. FUROSEMIDE. [Suspect]
     Active Substance: FUROSEMIDE
     Indication: ANURIA
     Route: 048
     Dates: start: 20141201, end: 20141213
  2. KANRENOL [Concomitant]
     Active Substance: CANRENOATE POTASSIUM
     Dosage: STRENGTH:100 MG TABLET, 20 TABLETS
     Route: 048
  3. DILATREND [Concomitant]
     Active Substance: CARVEDILOL
     Dosage: STRENGTH: 6.25 MG TABLETS 14 TABLETS
     Route: 048
  4. COUMADIN [Concomitant]
     Active Substance: WARFARIN SODIUM
     Dosage: FORM: DIVISIBLE TABLET?STRENGTH:5 MG TABLET, 30 DIVISIBLE TABLET
     Route: 048
  5. NITROGLYCERINE [Concomitant]
     Active Substance: NITROGLYCERIN
     Route: 048

REACTIONS (3)
  - Orthostatic hypotension [Unknown]
  - Syncope [Unknown]
  - Head injury [Unknown]

NARRATIVE: CASE EVENT DATE: 20141213
